FAERS Safety Report 11926129 (Version 2)
Quarter: 2016Q1

REPORT INFORMATION
  Report Type: Spontaneous
  Country: US (occurrence: US)
  Receive Date: 20160119
  Receipt Date: 20160205
  Transmission Date: 20160526
  Serious: No
  Sender: FDA-Public Use
  Company Number: US-TEVA-624326ACC

PATIENT
  Sex: Female

DRUGS (1)
  1. PLAN B ONE-STEP [Suspect]
     Active Substance: LEVONORGESTREL
     Indication: POST COITAL CONTRACEPTION
     Dates: start: 20150705, end: 20150705

REACTIONS (2)
  - Menstruation irregular [Not Recovered/Not Resolved]
  - Anovulatory cycle [Not Recovered/Not Resolved]

NARRATIVE: CASE EVENT DATE: 201508
